FAERS Safety Report 11196001 (Version 4)
Quarter: 2015Q3

REPORT INFORMATION
  Report Type: Spontaneous
  Country: US (occurrence: US)
  Receive Date: 20150617
  Receipt Date: 20150812
  Transmission Date: 20151125
  Serious: Yes (Other)
  Sender: FDA-Public Use
  Company Number: US-BAYER-2015-328489

PATIENT
  Age: 33 Year
  Sex: Female
  Weight: 116 kg

DRUGS (2)
  1. MIRENA [Suspect]
     Active Substance: LEVONORGESTREL
     Indication: CONTRACEPTION
     Dosage: 20 MCG/24HR, CONT
     Route: 015
     Dates: start: 20140925, end: 20150604
  2. MIRENA [Suspect]
     Active Substance: LEVONORGESTREL
     Indication: CONTRACEPTION
     Dosage: 20 MCG/24HR, CONT
     Route: 015
     Dates: start: 20150604, end: 20150608

REACTIONS (11)
  - Genital haemorrhage [None]
  - Ectopic pregnancy with contraceptive device [Recovered/Resolved]
  - Drug ineffective [Recovered/Resolved]
  - Abdominal pain lower [Recovered/Resolved]
  - Surgery [None]
  - Abdominal pain lower [None]
  - Pelvic pain [Recovered/Resolved]
  - Device expulsion [Recovered/Resolved]
  - Pelvic discomfort [None]
  - Off label use of device [None]
  - Drug ineffective [None]

NARRATIVE: CASE EVENT DATE: 2015
